FAERS Safety Report 8376093-6 (Version None)
Quarter: 2012Q2

REPORT INFORMATION
  Report Type: 
  Country: None (occurrence: None)
  Receive Date: 20120522
  Receipt Date: 20120514
  Transmission Date: 20120825
  Serious: Yes (Other)
  Sender: FDA-Public Use
  Company Number: PHHO2012NL007255

PATIENT
  Sex: Female
  Weight: 74.4 kg

DRUGS (4)
  1. CALCIUM [Concomitant]
     Indication: OSTEOPENIA
     Dosage: 500 MG, UNK
     Route: 048
  2. LETROZOLE [Suspect]
     Dosage: 2.5 MG, QD
     Route: 048
     Dates: start: 20120502
  3. LETROZOLE [Suspect]
     Indication: BREAST CANCER
     Dosage: 2.5 MG, QD
     Route: 048
     Dates: start: 20110817, end: 20120401
  4. ALENDRONATE SODIUM [Concomitant]
     Indication: OSTEOPENIA
     Dosage: 70 MG, UNK
     Route: 048
     Dates: start: 20110112

REACTIONS (1)
  - DYSPAREUNIA [None]
